FAERS Safety Report 7788438-6 (Version None)
Quarter: 2011Q3

REPORT INFORMATION
  Report Type: 
  Country: None (occurrence: None)
  Receive Date: 20110928
  Receipt Date: 20110908
  Transmission Date: 20111222
  Serious: Yes (Other)
  Sender: FDA-Public Use
  Company Number: 2011SP045310

PATIENT
  Age: 15 Year
  Sex: Female

DRUGS (3)
  1. ZOLOFT [Suspect]
     Indication: MAJOR DEPRESSION
  2. CLARITIN [Suspect]
     Indication: RHINITIS ALLERGIC
     Dosage: 10 MG; QD; PO
     Route: 048
  3. ALBUTEROL [Concomitant]

REACTIONS (5)
  - DRUG INTERACTION [None]
  - CONDITION AGGRAVATED [None]
  - DRUG DOSE OMISSION [None]
  - SUICIDAL IDEATION [None]
  - DEPRESSION [None]
